FAERS Safety Report 23356568 (Version 2)
Quarter: 2024Q1

REPORT INFORMATION
  Report Type: Spontaneous
  Country: US (occurrence: US)
  Receive Date: 20240102
  Receipt Date: 20240214
  Transmission Date: 20240409
  Serious: No
  Sender: FDA-Public Use
  Company Number: US-GSKCCFUS-Case-01892639_AE-105594

PATIENT
  Sex: Male

DRUGS (1)
  1. BREO ELLIPTA [Suspect]
     Active Substance: FLUTICASONE FUROATE\VILANTEROL TRIFENATATE
     Indication: Product used for unknown indication
     Dosage: UNK, 100/25 MCG

REACTIONS (3)
  - Pulmonary pain [Unknown]
  - Chest discomfort [Unknown]
  - Product complaint [Unknown]
